FAERS Safety Report 5898185-3 (Version None)
Quarter: 2008Q3

REPORT INFORMATION
  Report Type: 
  Country: None (occurrence: None)
  Receive Date: 20080925
  Receipt Date: 20080919
  Transmission Date: 20090109
  Serious: Yes (Other)
  Sender: FDA-Public Use
  Company Number: AR-ABBOTT-08P-007-0477400-00

PATIENT
  Sex: Female
  Weight: 57 kg

DRUGS (2)
  1. VALCOTE [Suspect]
     Indication: CYTOGENETIC ABNORMALITY
     Dosage: 250 MG (8 AM) 500MG (2 PM)
     Route: 048
     Dates: start: 20080701
  2. MELATONIN [Concomitant]
     Indication: INSOMNIA
     Route: 048
     Dates: start: 20070101

REACTIONS (1)
  - CONVULSION [None]
